FAERS Safety Report 8110323-0 (Version None)
Quarter: 2012Q1

REPORT INFORMATION
  Report Type: 
  Country: None (occurrence: None)
  Receive Date: 20120202
  Receipt Date: 20120130
  Transmission Date: 20120608
  Serious: Yes (Life-Threatening, Hospitalization, Other)
  Sender: FDA-Public Use
  Company Number: IT-ROCHE-1010568

PATIENT
  Sex: Female
  Weight: 62.5 kg

DRUGS (13)
  1. PAROXETINE HYDROCHLORIDE [Concomitant]
     Dates: start: 20090801, end: 20111028
  2. HYDROCHLOROTHIAZIDE [Concomitant]
     Dates: end: 20111028
  3. ACTEMRA [Suspect]
     Dosage: DISCONTINUED
     Route: 042
     Dates: start: 20111028, end: 20111028
  4. NEXIUM [Concomitant]
     Dates: end: 20111028
  5. ACTEMRA [Suspect]
     Route: 042
     Dates: start: 20110926, end: 20110926
  6. ACTEMRA [Suspect]
     Route: 042
     Dates: start: 20110829, end: 20110829
  7. LEDERFOLIN [Concomitant]
     Dosage: ONE TABLET ONCE A WEEK AND A DAY AFTER METHOTREXATE
     Dates: end: 20111028
  8. DICLOFENAC [Concomitant]
     Dates: start: 20101122, end: 20111028
  9. ACTEMRA [Suspect]
     Route: 042
     Dates: start: 20110728, end: 20110728
  10. VYTORIN [Concomitant]
     Dates: end: 20111028
  11. ASPIRIN [Concomitant]
  12. METHOTREXATE [Suspect]
     Indication: RHEUMATOID ARTHRITIS
     Dosage: DATE OF LAST DOSE PRIOR TO SAE: 18 OCTOBER 2011
     Route: 048
     Dates: start: 20091019
  13. ACTEMRA [Suspect]
     Indication: RHEUMATOID ARTHRITIS
     Route: 042
     Dates: start: 20091019

REACTIONS (2)
  - ACUTE RESPIRATORY DISTRESS SYNDROME [None]
  - BRONCHOPNEUMONIA [None]
